FAERS Safety Report 17526102 (Version 1)
Quarter: 2020Q1

REPORT INFORMATION
  Report Type: Report from Study
  Country: None (occurrence: US)
  Receive Date: 20200310
  Receipt Date: 20200310
  Transmission Date: 20200409
  Serious: Yes (Other)
  Sender: FDA-Public Use
  Company Number: US-ABBVIE-20K-163-3306362-00

PATIENT
  Sex: Female

DRUGS (1)
  1. ORILISSA [Suspect]
     Active Substance: ELAGOLIX SODIUM
     Indication: PRODUCT USED FOR UNKNOWN INDICATION
     Route: 048

REACTIONS (9)
  - Hot flush [Not Recovered/Not Resolved]
  - Cystitis interstitial [Recovering/Resolving]
  - Dehydration [Recovered/Resolved]
  - Stress [Unknown]
  - Mood swings [Not Recovered/Not Resolved]
  - Dizziness [Unknown]
  - Urinary retention [Not Recovered/Not Resolved]
  - Agitation [Unknown]
  - Urinary tract discomfort [Not Recovered/Not Resolved]
